FAERS Safety Report 19258405 (Version 3)
Quarter: 2021Q2

REPORT INFORMATION
  Report Type: Spontaneous
  Country: GB (occurrence: GB)
  Receive Date: 20210514
  Receipt Date: 20210608
  Transmission Date: 20210717
  Serious: Yes (Hospitalization, Disabling, Other)
  Sender: FDA-Public Use
  Company Number: GB-LEO PHARMA-336287

PATIENT
  Age: 36 Year
  Sex: Female
  Weight: 70 kg

DRUGS (15)
  1. PROTOPIC [Suspect]
     Active Substance: TACROLIMUS
     Indication: ECZEMA
     Dosage: AS NEEDED ON AFFECTED AREAS
     Route: 061
     Dates: start: 2017, end: 20181115
  2. PREDNISONE. [Suspect]
     Active Substance: PREDNISONE
     Indication: ECZEMA
     Dosage: 60MG DAILY, TAPERING OFF SLOWLY
     Route: 048
     Dates: start: 201808, end: 201810
  3. BETNOVATE [Suspect]
     Active Substance: BETAMETHASONE
     Indication: ECZEMA
     Dosage: DOSE INCREASED
  4. PROTOPIC [Suspect]
     Active Substance: TACROLIMUS
     Indication: ECZEMA
     Dosage: AS NEEDED ON AFFECTED AREAS
     Route: 061
     Dates: start: 2017, end: 20181115
  5. PROTOPIC [Suspect]
     Active Substance: TACROLIMUS
     Indication: ECZEMA
     Dosage: AS NEEDED ON AFFECTED AREAS
     Route: 061
     Dates: start: 2017, end: 20181115
  6. PROTOPIC [Suspect]
     Active Substance: TACROLIMUS
     Indication: ECZEMA
     Dosage: AS NEEDED ON AFFECTED AREAS
     Route: 061
     Dates: start: 2017, end: 20181115
  7. EUMOVATE [Suspect]
     Active Substance: CLOBETASONE BUTYRATE
     Indication: ECZEMA
     Dosage: AS NEEDED ON AFFECTED AREAS
     Route: 061
     Dates: start: 2016, end: 20181115
  8. PARACETAMOL [Concomitant]
     Active Substance: ACETAMINOPHEN
     Indication: ILL-DEFINED DISORDER
  9. IBUPROFEN. [Concomitant]
     Active Substance: IBUPROFEN
     Indication: ILL-DEFINED DISORDER
  10. PROTOPIC [Suspect]
     Active Substance: TACROLIMUS
     Indication: ECZEMA
     Dosage: AS NEEDED ON AFFECTED AREAS
     Route: 061
     Dates: start: 2017, end: 20181115
  11. HYDROCORTISONE. [Suspect]
     Active Substance: HYDROCORTISONE
     Indication: ECZEMA
     Dosage: AS NEEDED ON AFFECTED AREAS
     Route: 061
     Dates: start: 1985, end: 20181115
  12. BETNOVATE [Suspect]
     Active Substance: BETAMETHASONE
     Indication: ECZEMA
     Dosage: AS NEEDED ON AFFECTED AREAS
     Route: 061
     Dates: start: 2018, end: 20181115
  13. PROTOPIC [Suspect]
     Active Substance: TACROLIMUS
     Indication: ECZEMA
     Dosage: AS NEEDED ON AFFECTED AREAS
     Route: 061
     Dates: start: 2017, end: 20181115
  14. PROTOPIC [Suspect]
     Active Substance: TACROLIMUS
     Indication: ECZEMA
     Dosage: AS NEEDED ON AFFECTED AREAS
     Route: 061
     Dates: start: 2017, end: 20181115
  15. LORATADINE. [Concomitant]
     Active Substance: LORATADINE
     Indication: ILL-DEFINED DISORDER

REACTIONS (19)
  - Fatigue [Not Recovered/Not Resolved]
  - Incorrect product administration duration [Unknown]
  - Enzyme abnormality [Recovered/Resolved]
  - Scab [Not Recovered/Not Resolved]
  - Insomnia [Recovered/Resolved]
  - Skin wrinkling [Recovered/Resolved with Sequelae]
  - Eye discharge [Not Recovered/Not Resolved]
  - Peripheral swelling [Recovered/Resolved]
  - Skin burning sensation [Recovered/Resolved with Sequelae]
  - Alopecia [Recovered/Resolved]
  - Pruritus [Recovered/Resolved with Sequelae]
  - Urticaria [Not Recovered/Not Resolved]
  - Weight decreased [Recovered/Resolved]
  - Eye swelling [Recovering/Resolving]
  - Anxiety [Not Recovered/Not Resolved]
  - Skin exfoliation [Not Recovered/Not Resolved]
  - Tremor [Recovered/Resolved]
  - Inappropriate schedule of product administration [Unknown]
  - Pyrexia [Recovered/Resolved]

NARRATIVE: CASE EVENT DATE: 2016
